FAERS Safety Report 8226016-5 (Version None)
Quarter: 2012Q1

REPORT INFORMATION
  Report Type: 
  Country: None (occurrence: None)
  Receive Date: 20120321
  Receipt Date: 20120316
  Transmission Date: 20120608
  Serious: No
  Sender: FDA-Public Use
  Company Number: US-PFIZER INC-2012052579

PATIENT
  Sex: Female
  Weight: 58.957 kg

DRUGS (3)
  1. EFFEXOR [Suspect]
     Dosage: 75 MG, WEEKLY
     Dates: start: 20120201
  2. EFFEXOR [Suspect]
     Indication: DEPRESSION
     Dosage: 75 MG, DAILY
     Dates: start: 20110101
  3. LEVOTHYROXINE [Concomitant]
     Indication: THYROID DISORDER
     Dosage: 75 UG, 2X/DAY

REACTIONS (7)
  - HYPERHIDROSIS [None]
  - DIARRHOEA [None]
  - CRYING [None]
  - NAUSEA [None]
  - THYROID FUNCTION TEST ABNORMAL [None]
  - HEADACHE [None]
  - INAPPROPRIATE SCHEDULE OF DRUG ADMINISTRATION [None]
